FAERS Safety Report 7343000-4 (Version None)
Quarter: 2011Q1

REPORT INFORMATION
  Report Type: 
  Country: None (occurrence: None)
  Receive Date: 20110310
  Receipt Date: 20110228
  Transmission Date: 20110831
  Serious: Yes (Hospitalization)
  Sender: FDA-Public Use
  Company Number: DE-JNJFOC-20110208311

PATIENT
  Age: 40 Year
  Sex: Male

DRUGS (10)
  1. HALDOL [Suspect]
     Route: 048
  2. AKINETON [Interacting]
     Route: 048
  3. AKINETON [Interacting]
     Route: 048
  4. HALDOL [Suspect]
     Indication: PRODUCT USED FOR UNKNOWN INDICATION
     Route: 048
  5. AKINETON [Interacting]
     Indication: PRODUCT USED FOR UNKNOWN INDICATION
     Route: 048
  6. AKINETON [Interacting]
     Route: 048
  7. HALDOL [Suspect]
     Route: 048
  8. DIAZEPAM [Interacting]
     Indication: PRODUCT USED FOR UNKNOWN INDICATION
     Route: 048
  9. AKINETON [Interacting]
     Route: 048
  10. HALDOL [Suspect]
     Route: 048

REACTIONS (2)
  - URINARY RETENTION [None]
  - DRUG INTERACTION [None]
